FAERS Safety Report 6906727-1 (Version None)
Quarter: 2010Q3

REPORT INFORMATION
  Report Type: 
  Country: None (occurrence: None)
  Receive Date: 20100804
  Receipt Date: 20100726
  Transmission Date: 20110219
  Serious: Yes (Other)
  Sender: FDA-Public Use
  Company Number: CN-BAYER-201032001GPV

PATIENT
  Age: 83 Year
  Sex: Male

DRUGS (3)
  1. AVELOX [Suspect]
     Indication: PNEUMONIA
     Dosage: TOTAL DAILY DOSE: 0.4 G
     Route: 041
     Dates: start: 20081009, end: 20081016
  2. IPRATROPIUM BROMIDE [Concomitant]
     Indication: PNEUMONIA
     Route: 055
     Dates: start: 20081009
  3. ALBUTEROL [Concomitant]
     Indication: PNEUMONIA
     Route: 055
     Dates: start: 20081009

REACTIONS (8)
  - ABDOMINAL PAIN UPPER [None]
  - BLOOD BILIRUBIN INCREASED [None]
  - CHOLECYSTITIS ACUTE [None]
  - HEPATIC FUNCTION ABNORMAL [None]
  - JAUNDICE [None]
  - OCULAR ICTERUS [None]
  - PROTEIN URINE PRESENT [None]
  - RENAL IMPAIRMENT [None]
